FAERS Safety Report 15892931 (Version 1)
Quarter: 2019Q1

REPORT INFORMATION
  Report Type: Report from Study
  Country: US (occurrence: US)
  Receive Date: 20190130
  Receipt Date: 20190130
  Transmission Date: 20190417
  Serious: No
  Sender: FDA-Public Use
  Company Number: US-EXELIXIS-CABO-18016369

PATIENT
  Age: 43 Year
  Sex: Female

DRUGS (1)
  1. CABOMETYX [Suspect]
     Active Substance: CABOZANTINIB S-MALATE
     Indication: METASTASES TO KIDNEY
     Dosage: 60 MG, QD (Q  AM)
     Route: 048
     Dates: start: 20180915

REACTIONS (6)
  - Haemoglobin decreased [Not Recovered/Not Resolved]
  - Platelet count decreased [Unknown]
  - Decreased appetite [Recovering/Resolving]
  - Vomiting [Unknown]
  - Off label use [Unknown]
  - Dysgeusia [Not Recovered/Not Resolved]

NARRATIVE: CASE EVENT DATE: 2018
